FAERS Safety Report 9120117 (Version 2)
Quarter: 2013Q1

REPORT INFORMATION
  Report Type: Spontaneous
  Country: US (occurrence: US)
  Receive Date: 20130226
  Receipt Date: 20130228
  Transmission Date: 20140127
  Serious: No
  Sender: FDA-Public Use
  Company Number: US-009507513-1302USA010894

PATIENT
  Sex: Female

DRUGS (3)
  1. AZASITE [Suspect]
     Indication: BLEPHARITIS
     Dosage: ONE DROP IN EACH EYE, BID
     Route: 047
     Dates: start: 20130213
  2. ARMOUR THYROID TABLETS [Concomitant]
  3. PROVIGIL [Concomitant]

REACTIONS (5)
  - Photophobia [Not Recovered/Not Resolved]
  - Eye discharge [Not Recovered/Not Resolved]
  - Rhinorrhoea [Not Recovered/Not Resolved]
  - Drug dose omission [Unknown]
  - Product quality issue [Unknown]
